FAERS Safety Report 20120388 (Version 1)
Quarter: 2021Q4

REPORT INFORMATION
  Report Type: Report from Study
  Country: MX (occurrence: MX)
  Receive Date: 20211126
  Receipt Date: 20211126
  Transmission Date: 20220303
  Serious: Yes (Death)
  Sender: FDA-Public Use
  Company Number: MX-002147023-NVSC2021MX263582

PATIENT

DRUGS (1)
  1. RUXOLITINIB [Suspect]
     Active Substance: RUXOLITINIB
     Indication: Myelofibrosis
     Dosage: 15 MG
     Route: 048
     Dates: start: 202009, end: 202108

REACTIONS (1)
  - Multi-organ disorder [Fatal]

NARRATIVE: CASE EVENT DATE: 20210901
